FAERS Safety Report 5671356-7 (Version None)
Quarter: 2008Q1

REPORT INFORMATION
  Report Type: 
  Country: None (occurrence: None)
  Receive Date: 20080313
  Receipt Date: 20070717
  Transmission Date: 20080703
  Serious: No
  Sender: FDA-Public Use
  Company Number: MK-6035908

PATIENT
  Age: 46 Year
  Sex: Female

DRUGS (1)
  1. RANITIDINE [Suspect]
     Indication: OCCUPATIONAL EXPOSURE TO TOXIC AGENT
     Dosage: TOPICAL
     Route: 061

REACTIONS (3)
  - DERMATITIS CONTACT [None]
  - NASAL DISCOMFORT [None]
  - OCCUPATIONAL EXPOSURE TO TOXIC AGENT [None]
